FAERS Safety Report 7537988-6 (Version None)
Quarter: 2011Q2

REPORT INFORMATION
  Report Type: 
  Country: None (occurrence: None)
  Receive Date: 20110609
  Receipt Date: 20110603
  Transmission Date: 20111010
  Serious: Yes (Hospitalization)
  Sender: FDA-Public Use
  Company Number: US-BAXTER-2011BH018459

PATIENT
  Age: 73 Year
  Sex: Male
  Weight: 118 kg

DRUGS (6)
  1. GAMMAGARD LIQUID [Suspect]
     Indication: DEMYELINATING POLYNEUROPATHY
     Route: 042
     Dates: start: 20110517, end: 20110517
  2. NEURONTIN [Concomitant]
     Indication: PRODUCT USED FOR UNKNOWN INDICATION
     Route: 048
  3. GAMMAGARD LIQUID [Suspect]
     Indication: OFF LABEL USE
     Route: 042
     Dates: start: 20110517, end: 20110517
  4. GAMMAGARD LIQUID [Suspect]
     Route: 042
     Dates: start: 20110517, end: 20110517
  5. AMLODIPINE [Concomitant]
     Indication: PRODUCT USED FOR UNKNOWN INDICATION
     Route: 048
  6. GAMMAGARD LIQUID [Suspect]
     Route: 042
     Dates: start: 20110517, end: 20110517

REACTIONS (5)
  - ASTHENIA [None]
  - CHILLS [None]
  - DYSPNOEA [None]
  - PYREXIA [None]
  - PNEUMONIA [None]
